FAERS Safety Report 17842555 (Version 1)
Quarter: 2020Q2

REPORT INFORMATION
  Report Type: Spontaneous
  Country: IT (occurrence: GB)
  Receive Date: 20200529
  Receipt Date: 20200529
  Transmission Date: 20200714
  Serious: Yes (Other)
  Sender: FDA-Public Use
  Company Number: IT-BAXTER-2020BAX010690

PATIENT
  Sex: Female

DRUGS (4)
  1. SEVOFLURANE. [Suspect]
     Active Substance: SEVOFLURANE
     Indication: OCCUPATIONAL EXPOSURE TO PRODUCT
     Dosage: INHALED BY THE ANAESTHETISTS
     Route: 055
     Dates: start: 1992, end: 2002
  2. ENFLURANE. [Suspect]
     Active Substance: ENFLURANE
     Indication: OCCUPATIONAL EXPOSURE TO PRODUCT
     Dosage: INHALED BY THE ANESTHETIST
     Route: 055
     Dates: start: 1992, end: 2002
  3. AERRANE 100% LIQUID INHALATION VAPOUR [Suspect]
     Active Substance: ISOFLURANE
     Indication: OCCUPATIONAL EXPOSURE TO PRODUCT
     Dosage: INHALED BY THE ANAESTHETISTS
     Route: 055
     Dates: start: 1992, end: 2002
  4. HALOTHANE. [Suspect]
     Active Substance: HALOTHANE
     Indication: OCCUPATIONAL EXPOSURE TO PRODUCT
     Dosage: INHALED BY THE ANAESTHETISTS
     Route: 055
     Dates: start: 1992, end: 2002

REACTIONS (2)
  - Occupational exposure to product [Unknown]
  - Scleroderma [Unknown]

NARRATIVE: CASE EVENT DATE: 1992
